FAERS Safety Report 5010860-1 (Version None)
Quarter: 2006Q2

REPORT INFORMATION
  Report Type: 
  Country: None (occurrence: None)
  Receive Date: 20060525
  Receipt Date: 20060517
  Transmission Date: 20061013
  Serious: Yes (Death)
  Sender: FDA-Public Use
  Company Number: JP-JPN-A200601609

PATIENT
  Age: 72 Year
  Sex: Male

DRUGS (4)
  1. PAXIL [Suspect]
     Indication: DEPRESSION
     Dosage: 10MG SEE DOSAGE TEXT
     Route: 048
     Dates: start: 20060414, end: 20060507
  2. DOGMATYL [Concomitant]
     Dosage: 50MG THREE TIMES PER DAY
     Route: 048
     Dates: end: 20060507
  3. OXYPERTINE [Concomitant]
     Dosage: 20MG PER DAY
     Route: 048
     Dates: end: 20060507
  4. HALCION [Concomitant]
     Dosage: .25MG PER DAY
     Route: 048
     Dates: end: 20060507

REACTIONS (1)
  - COMPLETED SUICIDE [None]
